FAERS Safety Report 19694569 (Version 9)
Quarter: 2022Q3

REPORT INFORMATION
  Report Type: Report from Study
  Country: DE (occurrence: DE)
  Receive Date: 20210812
  Receipt Date: 20220707
  Transmission Date: 20221026
  Serious: Yes (Hospitalization)
  Sender: FDA-Public Use
  Company Number: NVSC2021DE179639

PATIENT
  Age: 62 Year
  Sex: Male
  Weight: 89 kg

DRUGS (18)
  1. NAPORAFENIB [Suspect]
     Active Substance: NAPORAFENIB
     Indication: Malignant melanoma
     Dosage: 400 MG, BID
     Route: 048
     Dates: start: 20210512, end: 20210803
  2. NAPORAFENIB [Suspect]
     Active Substance: NAPORAFENIB
     Dosage: 400 MG, BID
     Route: 048
     Dates: start: 20210811
  3. TRAMETINIB [Suspect]
     Active Substance: TRAMETINIB
     Indication: Malignant melanoma
     Dosage: 0.5 MG, QD
     Route: 048
     Dates: start: 20210512, end: 20210803
  4. TRAMETINIB [Suspect]
     Active Substance: TRAMETINIB
     Dosage: 0.5 MG, QD
     Route: 048
     Dates: start: 20210811
  5. METHYLPREDNISOLONE ACEPONATE [Concomitant]
     Active Substance: METHYLPREDNISOLONE ACEPONATE
     Indication: Dermatitis acneiform
     Dosage: UNK
     Route: 065
     Dates: start: 20210804, end: 20210812
  6. MOMETASONE [Concomitant]
     Active Substance: MOMETASONE
     Indication: Dermatitis acneiform
     Dosage: UNK
     Route: 065
     Dates: start: 20210804, end: 20210811
  7. CIMETIDIN [Concomitant]
     Indication: General physical condition
     Dosage: UNK
     Route: 065
     Dates: start: 20210806, end: 20211024
  8. BISOPROLOL [Concomitant]
     Active Substance: BISOPROLOL
     Indication: Hypertension
     Dosage: UNK
     Route: 065
     Dates: start: 20210427, end: 20210806
  9. RAMIPRIL [Concomitant]
     Active Substance: RAMIPRIL
     Indication: Hypertension
     Dosage: UNK
     Route: 065
     Dates: start: 20210427, end: 20210806
  10. MINOCYCLINE [Concomitant]
     Active Substance: MINOCYCLINE HYDROCHLORIDE
     Indication: Prophylaxis
     Dosage: UNK
     Route: 065
     Dates: start: 20210512, end: 20210806
  11. ROSUVASTATIN [Concomitant]
     Active Substance: ROSUVASTATIN
     Indication: Diabetes mellitus
     Dosage: UNK
     Route: 065
     Dates: start: 20210526, end: 20210806
  12. METRO [Concomitant]
     Indication: Prophylaxis
     Dosage: UNK
     Route: 065
     Dates: start: 20210512
  13. LUMIGAN [Concomitant]
     Active Substance: BIMATOPROST
     Indication: Eye disorder prophylaxis
     Dosage: UNK
     Route: 065
     Dates: start: 20210512
  14. INSULIN NOS [Concomitant]
     Active Substance: INSULIN NOS
     Indication: Diabetes mellitus
     Dosage: UNK
     Route: 058
  15. BATRAFEN [Concomitant]
     Indication: Tinea pedis
     Dosage: UNK
     Route: 065
     Dates: start: 20210427, end: 20210512
  16. CANDIO HERMAL [Concomitant]
     Indication: Tinea pedis
     Dosage: UNK
     Route: 061
     Dates: start: 20210427, end: 20210512
  17. METHYLPREDNISOLONE [Concomitant]
     Active Substance: METHYLPREDNISOLONE
     Indication: Product used for unknown indication
     Dosage: UNK
     Route: 065
     Dates: start: 20210810, end: 20210813
  18. METHYLPREDNISOLONE [Concomitant]
     Active Substance: METHYLPREDNISOLONE
     Dosage: UNK
     Route: 065
     Dates: start: 20210814

REACTIONS (1)
  - Acquired epidermolysis bullosa [Recovered/Resolved]

NARRATIVE: CASE EVENT DATE: 20210806
